FAERS Safety Report 24943978 (Version 1)
Quarter: 2025Q1

REPORT INFORMATION
  Report Type: Spontaneous
  Country: IE (occurrence: IE)
  Receive Date: 20250207
  Receipt Date: 20250207
  Transmission Date: 20250408
  Serious: Yes (Other)
  Sender: AMERICAN REGENT
  Company Number: IE-AMERICAN REGENT INC-2025000572

PATIENT
  Age: 38 Year
  Sex: Female
  Weight: 63 kg

DRUGS (1)
  1. FERINJECT [Suspect]
     Active Substance: FERRIC CARBOXYMALTOSE
     Indication: Iron deficiency anaemia
     Route: 042
     Dates: start: 20241217, end: 20241217

REACTIONS (2)
  - Swollen tongue [Recovered/Resolved]
  - Rash [Recovered/Resolved]

NARRATIVE: CASE EVENT DATE: 20241217
